FAERS Safety Report 11020073 (Version 2)
Quarter: 2015Q3

REPORT INFORMATION
  Report Type: Spontaneous
  Country: US (occurrence: US)
  Receive Date: 20150412
  Receipt Date: 20150828
  Transmission Date: 20151125
  Serious: Yes (Hospitalization, Other)
  Sender: FDA-Public Use
  Company Number: US-ARIAD-2014US004223

PATIENT
  Age: 47 Year
  Sex: Male
  Weight: 84 kg

DRUGS (17)
  1. ICLUSIG [Suspect]
     Active Substance: PONATINIB
     Indication: CHRONIC MYELOID LEUKAEMIA
     Dosage: 15 MG, QD
     Route: 048
  2. ICLUSIG [Suspect]
     Active Substance: PONATINIB
     Dosage: 30 MG, QD
     Route: 048
     Dates: start: 20150218
  3. TACROLIMUS. [Concomitant]
     Active Substance: TACROLIMUS
     Indication: STEM CELL TRANSPLANT
     Dosage: UNK
     Dates: start: 201406, end: 20141028
  4. ICLUSIG [Suspect]
     Active Substance: PONATINIB
     Dosage: 30 MG, QD
     Route: 048
     Dates: start: 20140715, end: 20150204
  5. GLIPIZIDE. [Concomitant]
     Active Substance: GLIPIZIDE
     Indication: TYPE 2 DIABETES MELLITUS
     Dosage: UNK
  6. ICLUSIG [Suspect]
     Active Substance: PONATINIB
     Dosage: 15 MG, QD
     Route: 048
     Dates: start: 20140417, end: 20140509
  7. VALTREX [Concomitant]
     Active Substance: VALACYCLOVIR HYDROCHLORIDE
     Indication: STEM CELL TRANSPLANT
     Dosage: UNK
     Dates: start: 201406
  8. METFORMIN [Concomitant]
     Active Substance: METFORMIN HYDROCHLORIDE
     Indication: TYPE 2 DIABETES MELLITUS
     Dosage: UNK
  9. ICLUSIG [Suspect]
     Active Substance: PONATINIB
     Dosage: 15 MG, QD
     Route: 048
     Dates: start: 20150318
  10. PROTONIX [Concomitant]
     Active Substance: PANTOPRAZOLE SODIUM
     Indication: STEM CELL TRANSPLANT
     Dosage: UNK
     Dates: start: 201406
  11. ICLUSIG [Suspect]
     Active Substance: PONATINIB
     Dosage: 15 MG, QD
     Route: 048
     Dates: start: 20140825
  12. URSODIOL. [Concomitant]
     Active Substance: URSODIOL
     Indication: STEM CELL TRANSPLANT
     Dosage: UNK
     Dates: start: 201406, end: 20141210
  13. VORICONAZOLE. [Concomitant]
     Active Substance: VORICONAZOLE
     Indication: STEM CELL TRANSPLANT
     Dosage: UNK
     Dates: start: 201406, end: 20141210
  14. ICLUSIG [Suspect]
     Active Substance: PONATINIB
     Dosage: 45 MG, QD
     Route: 048
     Dates: start: 20140401, end: 20140412
  15. ICLUSIG [Suspect]
     Active Substance: PONATINIB
     Dosage: 30 MG, QD
     Route: 048
     Dates: end: 20150208
  16. FOLBIC [Concomitant]
     Active Substance: CYANOCOBALAMIN\FOLIC ACID\PYRIDOXINE
     Indication: STEM CELL TRANSPLANT
     Dosage: UNK
     Dates: start: 201406
  17. ICLUSIG [Suspect]
     Active Substance: PONATINIB
     Dosage: UNK MG, UNK
     Route: 048
     Dates: start: 20140514, end: 20140603

REACTIONS (10)
  - Electrocardiogram T wave abnormal [Recovered/Resolved]
  - Gastrooesophageal reflux disease [Unknown]
  - Deep vein thrombosis [Recovered/Resolved]
  - Pancreatitis [Unknown]
  - Neoplasm progression [Unknown]
  - Thrombocytopenia [Unknown]
  - Liver function test abnormal [Unknown]
  - Fatigue [Unknown]
  - Type 2 diabetes mellitus [Unknown]
  - Stem cell transplant [Recovered/Resolved]

NARRATIVE: CASE EVENT DATE: 20140611
